FAERS Safety Report 10237335 (Version 1)
Quarter: 2014Q2

REPORT INFORMATION
  Report Type: Spontaneous
  Country: US (occurrence: US)
  Receive Date: 20140613
  Receipt Date: 20140613
  Transmission Date: 20141212
  Serious: Yes (Other)
  Sender: FDA-Public Use
  Company Number: US-RB-068662-14

PATIENT
  Age: 23 Year
  Sex: Female

DRUGS (2)
  1. BUPRENORPHINE/NALOXONE GENERIC [Suspect]
     Indication: SUBSTANCE USE
     Route: 045
     Dates: start: 20140525, end: 20140525
  2. NICOTINE [Concomitant]
     Indication: NICOTINE DEPENDENCE
     Dosage: SMOKING 10 CIGARETTES DAILY
     Route: 055

REACTIONS (6)
  - Abortion spontaneous [Not Recovered/Not Resolved]
  - Substance abuse [Recovered/Resolved]
  - Wrong technique in drug usage process [Recovered/Resolved]
  - Intentional product misuse [Recovered/Resolved]
  - Vomiting [Recovered/Resolved]
  - Maternal exposure during pregnancy [Recovered/Resolved]
